FAERS Safety Report 4697267-1 (Version None)
Quarter: 2005Q2

REPORT INFORMATION
  Report Type: 
  Country: None (occurrence: None)
  Receive Date: 20050622
  Receipt Date: 20041006
  Transmission Date: 20051028
  Serious: Yes (Death)
  Sender: FDA-Public Use
  Company Number: 2004AP05122

PATIENT
  Age: 55 Year
  Sex: Female

DRUGS (3)
  1. ARIMIDEX [Suspect]
     Indication: BREAST CANCER
     Route: 048
  2. EXEMESTANE [Concomitant]
     Dates: start: 20040201
  3. TAXOL [Concomitant]
     Dates: start: 20040201

REACTIONS (7)
  - FACIAL PALSY [None]
  - HEART RATE INCREASED [None]
  - HYPOGLOSSAL NERVE DISORDER [None]
  - PULMONARY FIBROSIS [None]
  - PULMONARY THROMBOSIS [None]
  - TUMOUR EMBOLISM [None]
  - VIIITH NERVE LESION [None]
